FAERS Safety Report 5739968-X (Version None)
Quarter: 2008Q2

REPORT INFORMATION
  Report Type: 
  Country: None (occurrence: None)
  Receive Date: 20080507
  Receipt Date: 20080507
  Transmission Date: 20081010
  Serious: No
  Sender: FDA-Public Use
  Company Number: None

PATIENT
  Age: 53 Year
  Sex: Female

DRUGS (2)
  1. NEUTROGENA CLEAR PORE   NEUTROGENA [Suspect]
     Indication: THERAPEUTIC SKIN CARE TOPICAL
     Dosage: TOP
     Route: 061
     Dates: start: 20080505, end: 20080505
  2. DOVE SOAP WITH ALOEVERA [Concomitant]

REACTIONS (7)
  - EMOTIONAL DISTRESS [None]
  - ERYTHEMA [None]
  - FEAR [None]
  - IMPAIRED WORK ABILITY [None]
  - PAIN OF SKIN [None]
  - SKIN WARM [None]
  - SWELLING FACE [None]
